FAERS Safety Report 26203317 (Version 1)
Quarter: 2025Q4

REPORT INFORMATION
  Report Type: Other
  Country: US (occurrence: None)
  Receive Date: 20251226
  Receipt Date: 20251226
  Transmission Date: 20260118
  Serious: Yes (Death, Other)
  Sender: APOTEX
  Company Number: US-APOTEX-2025AP034708

PATIENT
  Age: 57 Year
  Sex: Female

DRUGS (2)
  1. APO-VARENICLINE [Suspect]
     Active Substance: VARENICLINE TARTRATE
     Indication: Smoking cessation therapy
     Dosage: 0.5 MILLIGRAM, QD, (HALF TABLET ONCE A DAY)
     Route: 061
     Dates: start: 20220920, end: 20220922
  2. APO-VARENICLINE [Suspect]
     Active Substance: VARENICLINE TARTRATE
     Dosage: 0.5 MILLIGRAM, BID (HALF TABLET TWICE A DAY)
     Route: 061
     Dates: start: 20220923, end: 202209

REACTIONS (2)
  - Myocardial infarction [Fatal]
  - Chronic obstructive pulmonary disease [Fatal]
